FAERS Safety Report 9259359 (Version 2)
Quarter: 2013Q2

REPORT INFORMATION
  Report Type: Spontaneous
  Country: US (occurrence: US)
  Receive Date: 20130427
  Receipt Date: 20130610
  Transmission Date: 20140414
  Serious: Yes (Other)
  Sender: FDA-Public Use
  Company Number: US-ASTRAZENECA-2013SE24927

PATIENT
  Age: 41 Year
  Sex: Female
  Weight: 58.1 kg

DRUGS (4)
  1. SEROQUEL XR [Suspect]
     Indication: PSYCHOTIC DISORDER
     Route: 048
     Dates: start: 20121002, end: 20130327
  2. SEROQUEL XR [Suspect]
     Indication: PSYCHOTIC DISORDER
     Route: 048
     Dates: start: 20130327
  3. SEROQUEL XR [Suspect]
     Indication: PSYCHOTIC DISORDER
     Route: 048
     Dates: end: 20130405
  4. LEXAPRO [Concomitant]
     Indication: DEPRESSION
     Dates: start: 20121002, end: 20130405

REACTIONS (3)
  - Cataract [Recovering/Resolving]
  - Visual impairment [Unknown]
  - Intentional drug misuse [Recovered/Resolved]
